FAERS Safety Report 5616460-4 (Version None)
Quarter: 2008Q1

REPORT INFORMATION
  Report Type: 
  Country: None (occurrence: None)
  Receive Date: 20080207
  Receipt Date: 20071115
  Transmission Date: 20080703
  Serious: No
  Sender: FDA-Public Use
  Company Number: US-BAYER-200714875NA

PATIENT
  Age: 40 Year
  Sex: Female

DRUGS (1)
  1. TRI-LEVLEN 28 [Suspect]
     Indication: CONTRACEPTION
     Route: 048
     Dates: start: 19940101, end: 20071001

REACTIONS (4)
  - CONTACT LENS INTOLERANCE [None]
  - DRY EYE [None]
  - EYE IRRITATION [None]
  - EYE PRURITUS [None]
